FAERS Safety Report 24436940 (Version 1)
Quarter: 2024Q4

REPORT INFORMATION
  Report Type: Spontaneous
  Country: MY (occurrence: MY)
  Receive Date: 20241015
  Receipt Date: 20241015
  Transmission Date: 20250115
  Serious: Yes (Hospitalization)
  Sender: MACLEODS
  Company Number: MY-MLMSERVICE-20240927-PI210537-00246-1

PATIENT

DRUGS (3)
  1. OLANZAPINE [Suspect]
     Active Substance: OLANZAPINE
     Indication: Bipolar disorder
     Dosage: STARTED MORE THAN A YEAR AGO, AND THERE WAS NO RECENT CHANGE IN DOSAGE
     Route: 065
  2. LITHIUM [Suspect]
     Active Substance: LITHIUM
     Indication: Bipolar disorder
     Dosage: STARTED MORE THAN A YEAR AGO, AND THERE WAS NO RECENT CHANGE IN DOSAGE
     Route: 065
  3. TRIHEXYPHENIDYL [Concomitant]
     Active Substance: TRIHEXYPHENIDYL
     Indication: Bipolar disorder
     Dosage: STARTED MORE THAN A YEAR AGO, AND THERE WAS NO RECENT CHANGE IN DOSAGE
     Route: 065

REACTIONS (3)
  - Neuroleptic malignant syndrome [Recovered/Resolved]
  - Toxicity to various agents [Recovered/Resolved]
  - Drug interaction [Recovered/Resolved]
